FAERS Safety Report 9908893 (Version 5)
Quarter: 2014Q3

REPORT INFORMATION
  Report Type: Spontaneous
  Country: US (occurrence: US)
  Receive Date: 20140219
  Receipt Date: 20140714
  Transmission Date: 20150326
  Serious: Yes (Death, Hospitalization, Disabling, Other)
  Sender: FDA-Public Use
  Company Number: US-009507513-1204USA00478

PATIENT
  Sex: Female

DRUGS (7)
  1. FOSAMAX PLUS D [Suspect]
     Active Substance: ALENDRONATE SODIUM\CHOLECALCIFEROL
     Indication: OSTEOPENIA
  2. FOSAMAX [Suspect]
     Active Substance: ALENDRONATE SODIUM
     Indication: OSTEOPOROSIS
     Dosage: 10 MG, UNK
     Route: 048
     Dates: start: 1995, end: 2008
  3. ALENDRONATE SODIUM. [Suspect]
     Active Substance: ALENDRONATE SODIUM
     Indication: OSTEOPOROSIS
     Dosage: 70 MG, UNK
     Route: 048
     Dates: start: 2008, end: 2010
  4. LASIX [Concomitant]
     Active Substance: FUROSEMIDE
     Indication: PRODUCT USED FOR UNKNOWN INDICATION
     Dosage: UNK
     Dates: start: 2000, end: 2013
  5. FOSAMAX [Suspect]
     Active Substance: ALENDRONATE SODIUM
     Indication: OSTEOPENIA
  6. FOSAMAX PLUS D [Suspect]
     Active Substance: ALENDRONATE SODIUM\CHOLECALCIFEROL
     Indication: OSTEOPOROSIS
     Dosage: 70 MG, UNK
     Route: 048
     Dates: start: 2008
  7. ALENDRONATE SODIUM. [Suspect]
     Active Substance: ALENDRONATE SODIUM
     Indication: OSTEOPENIA

REACTIONS (50)
  - Arrhythmia [Recovered/Resolved]
  - Open reduction of fracture [Unknown]
  - Femur fracture [Unknown]
  - Urinary tract infection pseudomonal [Unknown]
  - Low turnover osteopathy [Unknown]
  - Renal impairment [Unknown]
  - Osteoporosis [Unknown]
  - Haemoglobin decreased [Unknown]
  - Hypercholesterolaemia [Unknown]
  - Aortic arteriosclerosis [Unknown]
  - Atelectasis [Unknown]
  - Drug dose omission [Unknown]
  - Hypertensive heart disease [Unknown]
  - Arcus lipoides [Unknown]
  - Back pain [Unknown]
  - Constipation [Not Recovered/Not Resolved]
  - Renal failure acute [Fatal]
  - Deep vein thrombosis [Unknown]
  - Knee arthroplasty [Unknown]
  - Haemorrhagic anaemia [Unknown]
  - Ileus [Unknown]
  - Cataract [Unknown]
  - Radius fracture [Unknown]
  - Intramedullary rod insertion [Unknown]
  - Cholecystitis acute [Unknown]
  - Cholecystectomy [Unknown]
  - Sciatica [Unknown]
  - Urinary retention [Unknown]
  - Inappropriate schedule of drug administration [Unknown]
  - Depression [Unknown]
  - Hypertension [Unknown]
  - Blood culture positive [Unknown]
  - Coronary artery disease [Unknown]
  - Arthralgia [Unknown]
  - Cardiac failure congestive [Fatal]
  - Intramedullary rod insertion [Recovered/Resolved]
  - Sepsis syndrome [Unknown]
  - Vitamin D deficiency [Unknown]
  - Upper respiratory tract infection [Unknown]
  - Hypovolaemia [Unknown]
  - Deep vein thrombosis [Unknown]
  - Anaemia [Unknown]
  - Hypokalaemia [Unknown]
  - Cardiovascular disorder [Unknown]
  - Syncope [Unknown]
  - Osteoarthritis [Unknown]
  - Femur fracture [Recovered/Resolved]
  - Aortic stenosis [Fatal]
  - Confusional state [Unknown]
  - Left ventricular hypertrophy [Unknown]

NARRATIVE: CASE EVENT DATE: 2005
